FAERS Safety Report 4354783-X (Version None)
Quarter: 2004Q2

REPORT INFORMATION
  Report Type: 
  Country: None (occurrence: None)
  Receive Date: 20040507
  Receipt Date: 20040504
  Transmission Date: 20050107
  Serious: Yes (Hospitalization)
  Sender: FDA-Public Use
  Company Number: US-MERCK-0405USA00209

PATIENT
  Sex: Female

DRUGS (2)
  1. [THERAPY UNSPECIFIED] [Concomitant]
     Route: 065
  2. FOSAMAX [Suspect]
     Route: 048

REACTIONS (1)
  - CHEST PAIN [None]
